FAERS Safety Report 7326376-3 (Version None)
Quarter: 2011Q1

REPORT INFORMATION
  Report Type: 
  Country: None (occurrence: None)
  Receive Date: 20110302
  Receipt Date: 20110216
  Transmission Date: 20110831
  Serious: Yes (Death, Other)
  Sender: FDA-Public Use
  Company Number: US-CELGENEUS-163-21880-11011063

PATIENT
  Sex: Female

DRUGS (29)
  1. LISINOPRIL [Concomitant]
     Dosage: 5 MILLIGRAM
     Route: 065
  2. PLAVIX [Concomitant]
     Dosage: 75 MILLIGRAM
     Route: 065
  3. PULMICORT [Concomitant]
     Dosage: 220 MICROGRAM
     Route: 065
  4. CELEXA [Concomitant]
     Dosage: 40 MILLIGRAM
     Route: 065
  5. LASIX [Concomitant]
     Dosage: 80 MILLIGRAM
     Route: 065
  6. KLOR-CON [Concomitant]
     Dosage: 20 MILLIEQUIVALENTS
     Route: 065
  7. CRESTOR [Concomitant]
     Dosage: 20 MILLIGRAM
     Route: 065
  8. ANTIBIOTICS [Concomitant]
     Route: 065
  9. NITROGLYCERIN [Concomitant]
     Route: 065
  10. OXYGEN [Concomitant]
     Route: 055
  11. REVLIMID [Suspect]
     Indication: MULTIPLE MYELOMA
     Dosage: 25 MILLIGRAM
     Route: 048
     Dates: start: 20101001, end: 20101201
  12. ASA [Concomitant]
     Dosage: 81 MILLIGRAM
     Route: 065
  13. ATROVENT [Concomitant]
     Dosage: .5 MILLIGRAM
     Route: 065
  14. RESTORIL [Concomitant]
     Dosage: 40 MILLIGRAM
     Route: 065
  15. ONDANSETRON [Concomitant]
     Dosage: 8 MILLIGRAM
     Route: 065
  16. MORPHINE [Concomitant]
     Dosage: 60 MILLIGRAM
     Route: 065
  17. HYDROMORPHONE [Concomitant]
     Dosage: 2 MILLIGRAM
     Route: 065
  18. XOPENEX [Concomitant]
     Route: 055
  19. PEPCID [Concomitant]
     Dosage: 20 MILLIGRAM
     Route: 065
  20. LOVAZA [Concomitant]
     Dosage: 1 GRAM
     Route: 065
  21. PHENERGAN [Concomitant]
     Dosage: 25 MILLIGRAM
     Route: 065
  22. SYNTHROID [Concomitant]
     Dosage: 150 MICROGRAM
     Route: 065
  23. VITAMIN D [Concomitant]
     Dosage: 50000 IU (INTERNATIONAL UNIT)
     Route: 065
  24. MS CONTIN [Concomitant]
     Indication: PAIN
     Dosage: 60 MILLIGRAM
     Route: 065
  25. DILAUDID [Concomitant]
     Indication: BREAKTHROUGH PAIN
     Route: 065
  26. PREDNISONE [Concomitant]
     Dosage: 5 MILLIGRAM
     Route: 065
  27. BROVANA [Concomitant]
     Dosage: .15 MILLIGRAM
     Route: 065
  28. NORCO [Concomitant]
     Indication: PAIN
     Dosage: 10/325
     Route: 065
  29. PROZAM [Concomitant]
     Indication: SLEEP DISORDER THERAPY
     Dosage: 2 MILLIGRAM
     Route: 065

REACTIONS (2)
  - NEUTROPHIL COUNT DECREASED [None]
  - CHRONIC OBSTRUCTIVE PULMONARY DISEASE [None]
